FAERS Safety Report 12784643 (Version 2)
Quarter: 2016Q4

REPORT INFORMATION
  Report Type: Spontaneous
  Country: DE (occurrence: DE)
  Receive Date: 20160927
  Receipt Date: 20161006
  Transmission Date: 20170207
  Serious: Yes (Other)
  Sender: FDA-Public Use
  Company Number: DE-JNJFOC-20160924305

PATIENT
  Sex: Female
  Weight: 80 kg

DRUGS (3)
  1. ANDRODERM [Concomitant]
     Active Substance: TESTOSTERONE
     Indication: KLINEFELTER^S SYNDROME
  2. HEPARIN [Concomitant]
     Active Substance: HEPARIN SODIUM
  3. XARELTO [Suspect]
     Active Substance: RIVAROXABAN
     Indication: PULMONARY EMBOLISM
     Route: 048
     Dates: start: 201405

REACTIONS (1)
  - Intraocular pressure increased [Not Recovered/Not Resolved]
